FAERS Safety Report 10332117 (Version 1)
Quarter: 2014Q3

REPORT INFORMATION
  Report Type: Spontaneous
  Country: US (occurrence: None)
  Receive Date: 20140721
  Receipt Date: 20140721
  Transmission Date: 20150326
  Serious: Yes (Life-Threatening, Disabling)
  Sender: FDA-Public Use
  Company Number: None

PATIENT
  Age: 56 Year
  Sex: Female
  Weight: 94.8 kg

DRUGS (1)
  1. AMIODARONE [Suspect]
     Active Substance: AMIODARONE
     Indication: CARDIAC FAILURE CONGESTIVE
     Dosage: BY MOUTH 2 PILLULES, IN THE EVENING, 200 MG IN THE MORNING
     Route: 048
     Dates: start: 20140109, end: 201403

REACTIONS (7)
  - Dyspnoea [None]
  - Eye disorder [None]
  - Thyroid disorder [None]
  - Liver disorder [None]
  - Haematocrit increased [None]
  - Decreased activity [None]
  - Asthenia [None]

NARRATIVE: CASE EVENT DATE: 20140109
